FAERS Safety Report 18467891 (Version 1)
Quarter: 2020Q4

REPORT INFORMATION
  Report Type: Spontaneous
  Country: US (occurrence: US)
  Receive Date: 20201104
  Receipt Date: 20201104
  Transmission Date: 20210114
  Serious: Yes (Life-Threatening)
  Sender: FDA-Public Use
  Company Number: None

PATIENT
  Age: 49 Year
  Sex: Male

DRUGS (1)
  1. ORBACTIV [Suspect]
     Active Substance: ORITAVANCIN
     Dates: start: 20191228

REACTIONS (7)
  - Chills [None]
  - Infusion related reaction [None]
  - Chest pain [None]
  - Hypertension [None]
  - Pyrexia [None]
  - Heart rate increased [None]
  - Skin discolouration [None]

NARRATIVE: CASE EVENT DATE: 20191228
